FAERS Safety Report 21225687 (Version 2)
Quarter: 2022Q3

REPORT INFORMATION
  Report Type: Report from Study
  Country: EG (occurrence: EG)
  Receive Date: 20220818
  Receipt Date: 20220913
  Transmission Date: 20221027
  Serious: Yes (Other)
  Sender: FDA-Public Use
  Company Number: EG-BAYER-2022A109263

PATIENT
  Sex: Female

DRUGS (6)
  1. EYLEA [Suspect]
     Active Substance: AFLIBERCEPT
     Indication: Diabetic retinal oedema
     Dosage: UNK UNK, ONCE, RIGHT EYE, SOLUTION FOR INJECTION; 40 MG/ML
     Route: 031
     Dates: start: 20220531, end: 20220531
  2. EYLEA [Suspect]
     Active Substance: AFLIBERCEPT
     Indication: Eye haematoma
     Dosage: UNK, ONCE, RIGHT EYE, SOLUTION FOR INJECTION; 40 MG/ML
     Route: 031
     Dates: start: 20220705, end: 20220705
  3. EYLEA [Suspect]
     Active Substance: AFLIBERCEPT
     Dosage: UNK, ONCE, RIGHT EYE, SOLUTION FOR INJECTION; 40 MG/ML
     Route: 031
     Dates: start: 20220815
  4. UNSPECIFIED INGREDIENT [Concomitant]
     Active Substance: UNSPECIFIED INGREDIENT
     Indication: Diabetes mellitus
     Dosage: 1 DF, QD
  5. ATORVASTATIN CALCIUM [Concomitant]
     Active Substance: ATORVASTATIN CALCIUM
     Indication: Hypercholesterolaemia
     Dosage: UNK
     Dates: start: 202207
  6. ERASTAPEX [Concomitant]
     Indication: Hypertension
     Dosage: 1 DF, QD
     Dates: start: 202207

REACTIONS (11)
  - Eye haemorrhage [Recovered/Resolved]
  - Visual impairment [Recovered/Resolved]
  - Eye haematoma [Recovered/Resolved]
  - Ocular hyperaemia [Recovered/Resolved]
  - Retinal oedema [Not Recovered/Not Resolved]
  - Inappropriate schedule of product administration [Not Recovered/Not Resolved]
  - Mental disorder [Not Recovered/Not Resolved]
  - Visual impairment [Not Recovered/Not Resolved]
  - Blood pressure increased [Not Recovered/Not Resolved]
  - Blood cholesterol increased [Not Recovered/Not Resolved]
  - Blood glucose increased [Not Recovered/Not Resolved]

NARRATIVE: CASE EVENT DATE: 20220531
